FAERS Safety Report 25331992 (Version 2)
Quarter: 2025Q2

REPORT INFORMATION
  Report Type: Spontaneous
  Country: US (occurrence: US)
  Receive Date: 20250519
  Receipt Date: 20250530
  Transmission Date: 20250717
  Serious: No
  Sender: BAUSCH AND LOMB
  Company Number: US-BAUSCHBL-2025BNL008496

PATIENT
  Age: 57 Year
  Sex: Male

DRUGS (2)
  1. LUMIFY [Suspect]
     Active Substance: BRIMONIDINE TARTRATE
     Indication: Ocular hyperaemia
     Dosage: 1 DROP INTO EACH EYE ONCE DAILY AS NEEDED
     Route: 047
     Dates: start: 2024
  2. LUMIFY [Suspect]
     Active Substance: BRIMONIDINE TARTRATE

REACTIONS (4)
  - Eye pruritus [Recovered/Resolved]
  - Ocular discomfort [Recovered/Resolved]
  - Product quality issue [Unknown]
  - Inappropriate schedule of product administration [Unknown]
